FAERS Safety Report 5189420-8 (Version None)
Quarter: 2006Q4

REPORT INFORMATION
  Report Type: 
  Country: None (occurrence: None)
  Receive Date: 20061215
  Receipt Date: 20061204
  Transmission Date: 20070319
  Serious: Yes (Hospitalization)
  Sender: FDA-Public Use
  Company Number: 2005063918

PATIENT
  Age: 31 Year
  Sex: Female
  Weight: 93.441 kg

DRUGS (9)
  1. SUTENT [Suspect]
     Indication: GASTROINTESTINAL STROMAL TUMOUR
     Dosage: SEE IMAGE
     Route: 048
     Dates: start: 20040630, end: 20040727
  2. SUTENT [Suspect]
     Indication: GASTROINTESTINAL STROMAL TUMOUR
     Dosage: SEE IMAGE
     Route: 048
     Dates: start: 20040811, end: 20050422
  3. SUTENT [Suspect]
     Indication: GASTROINTESTINAL STROMAL TUMOUR
     Dosage: SEE IMAGE
     Route: 048
     Dates: start: 20050427
  4. LISINOPRIL [Suspect]
     Indication: HYPERTENSION
     Dosage: 10 MG (10 MG, 1 IN 1 D), ORAL
     Route: 048
     Dates: start: 20031223, end: 20050423
  5. SYNTHROID [Concomitant]
  6. ARANESP [Concomitant]
  7. PROZAC [Concomitant]
  8. HYOSCYAMINE [Concomitant]
  9. CYANOCOBALAMIN [Concomitant]

REACTIONS (3)
  - ANGIONEUROTIC OEDEMA [None]
  - HYPERTENSIVE CRISIS [None]
  - REACTION TO DRUG EXCIPIENTS [None]
